FAERS Safety Report 4504477-2 (Version None)
Quarter: 2004Q4

REPORT INFORMATION
  Report Type: 
  Country: None (occurrence: None)
  Receive Date: 20041118
  Receipt Date: 20041116
  Transmission Date: 20050328
  Serious: Yes (Hospitalization)
  Sender: FDA-Public Use
  Company Number: CA-MERCK-0411CAN00154

PATIENT
  Sex: Female

DRUGS (1)
  1. VIOXX [Suspect]
     Indication: ARTHRITIS
     Route: 048

REACTIONS (8)
  - ANAEMIA [None]
  - CONTUSION [None]
  - CYSTITIS [None]
  - DECREASED APPETITE [None]
  - DIARRHOEA [None]
  - FUNGAL INFECTION [None]
  - VOMITING [None]
  - WEIGHT DECREASED [None]
